FAERS Safety Report 24154860 (Version 7)
Quarter: 2025Q1

REPORT INFORMATION
  Report Type: Report from Study
  Country: US (occurrence: US)
  Receive Date: 20240731
  Receipt Date: 20250122
  Transmission Date: 20250408
  Serious: Yes (Hospitalization, Other)
  Sender: DECIPHERA PHARMACEUTICALS
  Company Number: US-DECIPHERA PHARMACEUTICALS LLC-2024US000623

PATIENT
  Age: 56 Year
  Sex: Male
  Weight: 62.54 kg

DRUGS (3)
  1. QINLOCK [Suspect]
     Active Substance: RIPRETINIB
     Indication: Gastrointestinal stromal tumour
     Dosage: 50 MILLIGRAM, QD
     Route: 048
  2. QINLOCK [Suspect]
     Active Substance: RIPRETINIB
     Dosage: 150 MILLIGRAM, QD
     Route: 048
     Dates: start: 20240718
  3. QINLOCK [Suspect]
     Active Substance: RIPRETINIB
     Dosage: 150 MILLIGRAM, QD
     Route: 048

REACTIONS (30)
  - Malignant neoplasm progression [Not Recovered/Not Resolved]
  - Rectal haemorrhage [Unknown]
  - Loss of consciousness [Unknown]
  - Neuropathy peripheral [Unknown]
  - Skin exfoliation [Unknown]
  - Dizziness [Unknown]
  - Illness [Unknown]
  - Thinking abnormal [Unknown]
  - Pain [Unknown]
  - Skin fissures [Unknown]
  - Hypoaesthesia [Unknown]
  - Paraesthesia [Unknown]
  - Amnesia [Unknown]
  - Head injury [Unknown]
  - Chest pain [Unknown]
  - Tremor [Unknown]
  - Fall [Unknown]
  - Dysarthria [Recovering/Resolving]
  - Gait disturbance [Unknown]
  - Ligament sprain [Unknown]
  - Blood pressure fluctuation [Unknown]
  - Nasopharyngitis [Unknown]
  - Blood pressure increased [Unknown]
  - Pain in extremity [Unknown]
  - Muscular weakness [Unknown]
  - Dry skin [Unknown]
  - Pruritus [Unknown]
  - Dyspnoea [Unknown]
  - Product taste abnormal [Unknown]
  - Underdose [Unknown]

NARRATIVE: CASE EVENT DATE: 20240101
